FAERS Safety Report 26195258 (Version 1)
Quarter: 2025Q4

REPORT INFORMATION
  Report Type: Spontaneous
  Country: HK (occurrence: HK)
  Receive Date: 20251224
  Receipt Date: 20251224
  Transmission Date: 20260118
  Serious: Yes (Death, Hospitalization, Other)
  Sender: EXELA PHARMA SCIENCES
  Company Number: HK-EXELAPHARMA-2025EXLA00225

PATIENT
  Age: 43 Year
  Sex: Male

DRUGS (11)
  1. AKOVAZ [Suspect]
     Active Substance: EPHEDRINE SULFATE
     Indication: Drug abuse
     Dosage: COUGH MIXTURE INGESTED- 60 ML
  2. PROMETHAZINE [Suspect]
     Active Substance: PROMETHAZINE HYDROCHLORIDE
     Indication: Drug abuse
     Dosage: COUGH MIXTURE INGESTED- 60 ML
  3. BROMPHENIRAMINE [Suspect]
     Active Substance: BROMPHENIRAMINE
     Indication: Drug abuse
     Dosage: COUGH MIXTURE INGESTED- 60 ML
  4. CARBINOXAMINE [Suspect]
     Active Substance: CARBINOXAMINE
     Indication: Drug abuse
     Dosage: COUGH MIXTURE INGESTED- 60 ML
  5. CHLORPHENIRAMINE [Suspect]
     Active Substance: CHLORPHENIRAMINE
     Indication: Drug abuse
     Dosage: COUGH MIXTURE INGESTED- 60 ML
  6. CODEINE [Suspect]
     Active Substance: CODEINE
     Indication: Drug abuse
  7. DEXTROMETHORPHAN [Suspect]
     Active Substance: DEXTROMETHORPHAN
     Indication: Drug abuse
     Dosage: COUGH MIXTURE INGESTED- 60 ML
  8. HYDROCODONE [Suspect]
     Active Substance: HYDROCODONE
     Indication: Drug abuse
  9. MORPHINE [Suspect]
     Active Substance: MORPHINE
     Indication: Drug abuse
  10. PHENYLPROPANOLAMINE [Suspect]
     Active Substance: PHENYLPROPANOLAMINE
     Indication: Drug abuse
  11. ZOPICLONE [Suspect]
     Active Substance: ZOPICLONE
     Indication: Drug abuse

REACTIONS (7)
  - Loss of consciousness [Fatal]
  - Seizure [Fatal]
  - Pneumonia [Fatal]
  - Acute kidney injury [Fatal]
  - Rhabdomyolysis [Fatal]
  - Hyperthermia [Fatal]
  - Drug abuser [Fatal]
